FAERS Safety Report 6462938 (Version 9)
Quarter: 2014Q1

REPORT INFORMATION
  Report Type: Spontaneous
  Country: US (occurrence: US)
  Receive Date: 20071109
  Receipt Date: 20140120
  Transmission Date: 20141002
  Serious: Yes (Death, Hospitalization, Other)
  Sender: FDA-Public Use
  Company Number: US-ASTRAZENECA-2007UW25889

PATIENT
  Age: 40 Year
  Sex: Female
  Weight: 61.2 kg

DRUGS (13)
  1. SEROQUEL [Suspect]
     Indication: PAIN MANAGEMENT
     Route: 048
  2. SEROQUEL [Suspect]
     Indication: PAIN MANAGEMENT
     Route: 048
     Dates: start: 20060104, end: 20060106
  3. SEROQUEL [Suspect]
     Indication: PAIN MANAGEMENT
     Dosage: 25 MG Q6H TO 100 MG QHS
     Route: 048
     Dates: start: 20060105, end: 20060106
  4. DIAZEPAM [Concomitant]
     Dates: start: 20051230
  5. CARISOPRODOL [Concomitant]
     Dates: start: 20020426
  6. VIOXX [Concomitant]
     Dates: start: 20040526
  7. CEPHALEXIN [Concomitant]
     Dates: start: 20010813
  8. METRONIDAZOLE [Concomitant]
     Dates: start: 20011022
  9. CHLORDIAZEPOXIDE/LIBRIUM [Concomitant]
     Route: 048
     Dates: start: 20060106
  10. WELLBUTRIN [Concomitant]
  11. NASONEX [Concomitant]
  12. PALGIC [Concomitant]
     Dates: start: 20041022
  13. HYDROCO/ACETAMINO [Concomitant]
     Dates: start: 20050207

REACTIONS (10)
  - Neuroleptic malignant syndrome [Fatal]
  - Drug abuse [Fatal]
  - Rhabdomyolysis [Unknown]
  - Adverse event [Unknown]
  - Leukocytosis [Unknown]
  - Lactic acidosis [Unknown]
  - Hypoglycaemia [Unknown]
  - Respiratory failure [Unknown]
  - Convulsion [Unknown]
  - Pyrexia [Unknown]
